FAERS Safety Report 11721386 (Version 2)
Quarter: 2015Q4

REPORT INFORMATION
  Report Type: Spontaneous
  Country: SE (occurrence: SE)
  Receive Date: 20151111
  Receipt Date: 20151112
  Transmission Date: 20160304
  Serious: Yes (Hospitalization, Other)
  Sender: FDA-Public Use
  Company Number: SE-ASTRAZENECA-2015SF07235

PATIENT
  Age: 55 Year
  Sex: Male

DRUGS (6)
  1. ATORVASTATIN [Concomitant]
     Active Substance: ATORVASTATIN
  2. ALVEDON [Concomitant]
     Active Substance: ACETAMINOPHEN
  3. BISOPROLOL [Concomitant]
     Active Substance: BISOPROLOL
     Dates: end: 201507
  4. NITROLINGUAL [Concomitant]
     Active Substance: NITROGLYCERIN
  5. BRILIQUE [Suspect]
     Active Substance: TICAGRELOR
     Indication: MYOCARDIAL ISCHAEMIA
     Route: 048
     Dates: start: 20150622, end: 20150807
  6. TROMBYL [Concomitant]
     Active Substance: ASPIRIN

REACTIONS (5)
  - Bradycardia [Unknown]
  - Dyspnoea exertional [Recovered/Resolved]
  - Chest pain [Recovered/Resolved]
  - Fatigue [Recovering/Resolving]
  - Asthenia [Unknown]

NARRATIVE: CASE EVENT DATE: 201507
